FAERS Safety Report 5672193-X (Version None)
Quarter: 2008Q1

REPORT INFORMATION
  Report Type: 
  Country: None (occurrence: None)
  Receive Date: 20080319
  Receipt Date: 20080307
  Transmission Date: 20080703
  Serious: Yes (Other)
  Sender: FDA-Public Use
  Company Number: US-ROCHE-551945

PATIENT
  Age: 39 Year
  Sex: Male

DRUGS (2)
  1. TAMIFLU [Suspect]
     Dosage: OTHER INDICATION: LOW GRADE FEVER; RECEIVED A TOTAL OF SEVEN DOSES.
     Route: 065
     Dates: start: 20080303, end: 20080307
  2. ROCEPHIN [Suspect]
     Route: 030
     Dates: start: 20080306, end: 20080306

REACTIONS (6)
  - CONFUSIONAL STATE [None]
  - HALLUCINATION [None]
  - INSOMNIA [None]
  - PHARYNGOLARYNGEAL PAIN [None]
  - SINUSITIS [None]
  - SUICIDAL IDEATION [None]
